FAERS Safety Report 8495976-X (Version None)
Quarter: 2012Q3

REPORT INFORMATION
  Report Type: 
  Country: None (occurrence: None)
  Receive Date: 20120709
  Receipt Date: 20120629
  Transmission Date: 20120928
  Serious: Yes (Other)
  Sender: FDA-Public Use
  Company Number: LT-VIIV HEALTHCARE LIMITED-B0812609A

PATIENT
  Age: 31 Year
  Sex: Male

DRUGS (2)
  1. KALETRA [Concomitant]
     Indication: HIV INFECTION
     Dosage: 4TAB PER DAY
  2. ABACAVIR SULFATE/LAMIVUDINE [Suspect]
     Indication: HIV INFECTION
     Dosage: 1TAB PER DAY
     Route: 065

REACTIONS (2)
  - ABDOMINAL PAIN UPPER [None]
  - HEPATIC FUNCTION ABNORMAL [None]
